FAERS Safety Report 5252885-7 (Version None)
Quarter: 2007Q1

REPORT INFORMATION
  Report Type: 
  Country: None (occurrence: None)
  Receive Date: 20070227
  Receipt Date: 20070213
  Transmission Date: 20070707
  Serious: Yes (Hospitalization)
  Sender: FDA-Public Use
  Company Number: T200700212

PATIENT
  Age: 51 Year
  Sex: Male

DRUGS (5)
  1. FLUOXETINE [Suspect]
     Indication: MAJOR DEPRESSION
     Dosage: 20 MG, QD, ORAL; 40 MG, QD,
     Route: 048
  2. BUPROPION (BUPROPION) SLOW RELEASE TABLET [Suspect]
     Indication: ASTHENIA
     Dosage: 150 MG, QD, ORAL
     Route: 048
  3. BUPROPION (BUPROPION) SLOW RELEASE TABLET [Suspect]
     Indication: FATIGUE
     Dosage: 150 MG, QD, ORAL
     Route: 048
  4. BROMAZEPAM (BROMAZEPAM) [Concomitant]
  5. ALPRAZOLAM [Concomitant]

REACTIONS (9)
  - ANXIETY [None]
  - DELIRIUM [None]
  - DRUG INEFFECTIVE [None]
  - DRUG INTERACTION [None]
  - ELECTROENCEPHALOGRAM ABNORMAL [None]
  - HALLUCINATION, AUDITORY [None]
  - MEMORY IMPAIRMENT [None]
  - PARANOIA [None]
  - SLEEP DISORDER [None]
